FAERS Safety Report 5292603-X (Version None)
Quarter: 2007Q2

REPORT INFORMATION
  Report Type: 
  Country: None (occurrence: None)
  Receive Date: 20070404
  Receipt Date: 20070321
  Transmission Date: 20071010
  Serious: Yes (Hospitalization)
  Sender: FDA-Public Use
  Company Number: THYR-10409

PATIENT
  Age: 69 Year
  Sex: Male

DRUGS (4)
  1. THYROGEN [Suspect]
     Indication: GOITRE
     Dosage: 0.2 MG QD IM
     Route: 030
  2. METHIMAZOLE [Concomitant]
  3. ANTIHYPERTENSIVE DRUGS (UNSPECIFIED) [Concomitant]
  4. PSYCHATRIC DRUGS (UNSPECIFIED) [Concomitant]

REACTIONS (5)
  - AGITATION [None]
  - HYPERTHYROIDISM [None]
  - PALPITATIONS [None]
  - POST PROCEDURAL HYPOTHYROIDISM [None]
  - TREMOR [None]
